FAERS Safety Report 17870288 (Version 2)
Quarter: 2020Q2

REPORT INFORMATION
  Report Type: Report from Study
  Country: DE (occurrence: DE)
  Receive Date: 20200608
  Receipt Date: 20200622
  Transmission Date: 20200714
  Serious: Yes (Death)
  Sender: FDA-Public Use
  Company Number: DE-BEH-2020118307

PATIENT
  Age: 83 Year
  Sex: Female
  Weight: 49 kg

DRUGS (10)
  1. IMBRUVICA [Concomitant]
     Active Substance: IBRUTINIB
  2. COTRIM FORTE [Concomitant]
     Active Substance: SULFAMETHOXAZOLE\TRIMETHOPRIM
  3. BELOC ZOK MITE [Concomitant]
     Active Substance: METOPROLOL SUCCINATE
  4. DUROGESIC SMAT [Concomitant]
     Active Substance: FENTANYL
  5. CANDECOR [Concomitant]
     Active Substance: CANDESARTAN CILEXETIL
  6. FENTANYL TRANSDERMAL SYSTEM [Concomitant]
     Active Substance: FENTANYL
  7. FERRO-SANOL DUODENAL [Concomitant]
     Active Substance: FERROUS GLYCINE SULFATE
  8. METOHEXAL SUCC [Concomitant]
     Active Substance: METOPROLOL SUCCINATE
  9. PRIVIGEN [Suspect]
     Active Substance: HUMAN IMMUNOGLOBULIN G
     Indication: SECONDARY IMMUNODEFICIENCY
     Dosage: 20 GRAM, TOT
     Route: 042
     Dates: start: 20200326, end: 20200326
  10. PRIVIGEN [Suspect]
     Active Substance: HUMAN IMMUNOGLOBULIN G
     Dosage: 20 GRAM, TOT
     Route: 042
     Dates: start: 20200423, end: 20200423

REACTIONS (2)
  - Pneumonia [Fatal]
  - Cardiac failure [Fatal]

NARRATIVE: CASE EVENT DATE: 20200520
